FAERS Safety Report 8270147-0 (Version None)
Quarter: 2012Q2

REPORT INFORMATION
  Report Type: 
  Country: None (occurrence: None)
  Receive Date: 20120410
  Receipt Date: 20120404
  Transmission Date: 20120825
  Serious: Yes (Hospitalization)
  Sender: FDA-Public Use
  Company Number: PHHY2012FR029573

PATIENT
  Sex: Female

DRUGS (2)
  1. CRESTOR [Concomitant]
     Dosage: 5 MG, UNK
     Dates: start: 20040101
  2. FEMARA [Suspect]
     Indication: BREAST CANCER
     Dosage: 2.5 MG, QD
     Route: 048
     Dates: start: 20110101

REACTIONS (2)
  - TENDONITIS [None]
  - TENDON RUPTURE [None]
